FAERS Safety Report 12478405 (Version 2)
Quarter: 2016Q2

REPORT INFORMATION
  Report Type: Report from Study
  Country: HU (occurrence: HU)
  Receive Date: 20160618
  Receipt Date: 20160629
  Transmission Date: 20160815
  Serious: Yes (Hospitalization)
  Sender: FDA-Public Use
  Company Number: HU-JNJFOC-20160423273

PATIENT
  Sex: Male

DRUGS (22)
  1. ENDOXAN [Concomitant]
     Active Substance: CYCLOPHOSPHAMIDE
     Dates: start: 20150917
  2. NITROGLYCERIN. [Concomitant]
     Active Substance: NITROGLYCERIN
     Indication: ARTERIOSCLEROSIS CORONARY ARTERY
     Route: 065
  3. MABTHERA [Concomitant]
     Active Substance: RITUXIMAB
     Dates: start: 20160325
  4. IMBRUVICA [Suspect]
     Active Substance: IBRUTINIB
     Indication: CHRONIC LYMPHOCYTIC LEUKAEMIA
     Route: 048
     Dates: start: 20150604, end: 20160126
  5. FLUDARA [Concomitant]
     Active Substance: FLUDARABINE PHOSPHATE
     Dates: start: 20150917
  6. MABTHERA [Concomitant]
     Active Substance: RITUXIMAB
     Dates: start: 20160331
  7. MABTHERA [Concomitant]
     Active Substance: RITUXIMAB
     Dates: start: 20160307
  8. MABTHERA [Concomitant]
     Active Substance: RITUXIMAB
     Dates: start: 20150723
  9. MABTHERA [Concomitant]
     Active Substance: RITUXIMAB
     Dates: start: 20150917
  10. ENDOXAN [Concomitant]
     Active Substance: CYCLOPHOSPHAMIDE
     Dates: start: 20150723
  11. NEULASTA [Concomitant]
     Active Substance: PEGFILGRASTIM
     Indication: WHITE BLOOD CELL COUNT DECREASED
     Dates: start: 2006
  12. MABTHERA [Concomitant]
     Active Substance: RITUXIMAB
     Dates: start: 20160318
  13. ENDOXAN [Concomitant]
     Active Substance: CYCLOPHOSPHAMIDE
     Dates: start: 20160331
  14. LOTENSIN [Concomitant]
     Active Substance: BENAZEPRIL HYDROCHLORIDE
     Indication: ARTERIOSCLEROSIS CORONARY ARTERY
     Route: 065
  15. MILURIT [Concomitant]
     Active Substance: ALLOPURINOL
     Indication: PRODUCT USED FOR UNKNOWN INDICATION
     Route: 065
     Dates: start: 20060629
  16. FLUDARA [Concomitant]
     Active Substance: FLUDARABINE PHOSPHATE
     Dates: start: 20150723
  17. ENDOXAN [Concomitant]
     Active Substance: CYCLOPHOSPHAMIDE
     Dates: start: 20160325
  18. ENDOXAN [Concomitant]
     Active Substance: CYCLOPHOSPHAMIDE
     Dates: start: 20160318
  19. ENDOXAN [Concomitant]
     Active Substance: CYCLOPHOSPHAMIDE
     Dates: start: 20160307
  20. SUMETROLIM [Concomitant]
     Dates: start: 20150723
  21. SUMETROLIM [Concomitant]
     Dates: start: 20150917
  22. EPOETIN ALFA [Concomitant]
     Active Substance: ERYTHROPOIETIN
     Indication: ANAEMIA
     Dates: start: 2006

REACTIONS (3)
  - Pancytopenia [Not Recovered/Not Resolved]
  - Aplastic anaemia [Not Recovered/Not Resolved]
  - Lymphocytosis [Recovering/Resolving]
